FAERS Safety Report 10726116 (Version 5)
Quarter: 2015Q1

REPORT INFORMATION
  Report Type: Report from Study
  Country: FR (occurrence: FR)
  Receive Date: 20150121
  Receipt Date: 20150213
  Transmission Date: 20150721
  Serious: Yes (Death, Hospitalization)
  Sender: FDA-Public Use
  Company Number: FR-ROCHE-1521479

PATIENT
  Age: 49 Year
  Sex: Female
  Weight: 45 kg

DRUGS (6)
  1. VOGALENE [Concomitant]
     Active Substance: METOPIMAZINE
     Indication: VOMITING
     Route: 048
     Dates: start: 20140102
  2. KCL CORRECTIVE [Concomitant]
     Route: 048
  3. PRIMPERAN [Concomitant]
     Active Substance: METOCLOPRAMIDE HYDROCHLORIDE
     Indication: VOMITING
     Route: 048
     Dates: start: 20140102
  4. CETORNAN [Concomitant]
     Indication: MALNUTRITION
     Route: 048
     Dates: start: 20140102
  5. VEMURAFENIB [Suspect]
     Active Substance: VEMURAFENIB
     Indication: LUNG NEOPLASM MALIGNANT
     Dosage: LAST DOSE ADMINISTERED BEFORE SAE 960 MG?4 TABLETS IN THE MORNING AND 4 TABLETS IN THE EVENING FOR 3
     Route: 048
     Dates: start: 20141128, end: 20150109
  6. DIPROSONE CREAM [Concomitant]
     Indication: ERYTHEMA
     Route: 065
     Dates: start: 20140102

REACTIONS (3)
  - Dehydration [Fatal]
  - Metabolic alkalosis [Unknown]
  - Vomiting [Unknown]

NARRATIVE: CASE EVENT DATE: 20150110
